FAERS Safety Report 17435741 (Version 1)
Quarter: 2020Q1

REPORT INFORMATION
  Report Type: Spontaneous
  Country: US (occurrence: US)
  Receive Date: 20200219
  Receipt Date: 20200219
  Transmission Date: 20200409
  Serious: Yes (Hospitalization)
  Sender: FDA-Public Use
  Company Number: US-ASTRAZENECA-2020SE23644

PATIENT
  Sex: Male

DRUGS (9)
  1. SYNAGIS [Suspect]
     Active Substance: PALIVIZUMAB
     Indication: ANTIVIRAL PROPHYLAXIS
     Route: 030
  2. ALBUTEROL. [Concomitant]
     Active Substance: ALBUTEROL
  3. IBUPROFEN INFANTS [Concomitant]
     Active Substance: IBUPROFEN
  4. AMIODARONE HCL [Concomitant]
     Active Substance: AMIODARONE HYDROCHLORIDE
  5. CETRIZINE HCL CHLDRENS [Concomitant]
  6. SYNAGIS [Suspect]
     Active Substance: PALIVIZUMAB
     Indication: ANTIVIRAL PROPHYLAXIS
     Route: 030
  7. DEXAMETHASONE. [Concomitant]
     Active Substance: DEXAMETHASONE
  8. INFANTS TYLENOL [Concomitant]
     Active Substance: ACETAMINOPHEN
  9. BENADRYL ALLERGY CHILDREN [Concomitant]

REACTIONS (2)
  - H1N1 influenza [Unknown]
  - Pneumonia [Unknown]
